FAERS Safety Report 5975297-7 (Version None)
Quarter: 2008Q4

REPORT INFORMATION
  Report Type: 
  Country: None (occurrence: None)
  Receive Date: 20081202
  Receipt Date: 20081123
  Transmission Date: 20090506
  Serious: Yes (Disabling)
  Sender: FDA-Public Use
  Company Number: GB-BAYER-200813322BNE

PATIENT
  Sex: Male

DRUGS (1)
  1. CIPRO [Suspect]
     Indication: PROSTATITIS
     Route: 048
     Dates: start: 20080401

REACTIONS (9)
  - ABASIA [None]
  - ARTHRALGIA [None]
  - BONE PAIN [None]
  - DYSSTASIA [None]
  - HYPERHIDROSIS [None]
  - INSOMNIA [None]
  - MYALGIA [None]
  - TREMOR [None]
  - VISION BLURRED [None]
